FAERS Safety Report 19483004 (Version 1)
Quarter: 2021Q3

REPORT INFORMATION
  Report Type: Spontaneous
  Country: US (occurrence: US)
  Receive Date: 20210701
  Receipt Date: 20210701
  Transmission Date: 20211014
  Serious: Yes (Hospitalization)
  Sender: FDA-Public Use
  Company Number: US-MYLANLABS-2021M1038516

PATIENT
  Age: 27 Year
  Sex: Male

DRUGS (4)
  1. MIDAZOLAM. [Suspect]
     Active Substance: MIDAZOLAM
     Indication: PSYCHOMOTOR HYPERACTIVITY
     Dosage: RECEVIED MULTIPLE DOSES
     Route: 065
  2. KETAMINE [Suspect]
     Active Substance: KETAMINE
     Indication: PSYCHOMOTOR HYPERACTIVITY
     Dosage: RECEVIED MULTIPLE DOSES
     Route: 065
  3. OLANZAPINE. [Suspect]
     Active Substance: OLANZAPINE
     Indication: PSYCHOMOTOR HYPERACTIVITY
     Dosage: RECEVIED MULTIPLE DOSES
     Route: 065
  4. LORAZEPAM. [Suspect]
     Active Substance: LORAZEPAM
     Indication: PSYCHOMOTOR HYPERACTIVITY
     Dosage: RECEVIED MULTIPLE DOSES
     Route: 065

REACTIONS (1)
  - Drug ineffective [Unknown]
